FAERS Safety Report 7963097-8 (Version None)
Quarter: 2011Q4

REPORT INFORMATION
  Report Type: 
  Country: None (occurrence: None)
  Receive Date: 20111207
  Receipt Date: 20111031
  Transmission Date: 20120403
  Serious: Yes (Other)
  Sender: FDA-Public Use
  Company Number: CA-ROCHE-GNE302975

PATIENT
  Sex: Female
  Weight: 79.085 kg

DRUGS (2)
  1. OMALIZUMAB [Suspect]
     Indication: ASTHMA
     Dosage: 375 MG, Q2W
     Route: 058
     Dates: start: 20100325
  2. OMALIZUMAB [Suspect]
     Dosage: 375 MG, Q2W
     Route: 058
     Dates: start: 20100408

REACTIONS (22)
  - FIBROMYALGIA [None]
  - OBSTRUCTIVE AIRWAYS DISORDER [None]
  - PRURITUS [None]
  - CHEST DISCOMFORT [None]
  - UPPER RESPIRATORY TRACT CONGESTION [None]
  - INTERVERTEBRAL DISC DEGENERATION [None]
  - NECK PAIN [None]
  - ABDOMINAL PAIN UPPER [None]
  - JOINT SWELLING [None]
  - MALAISE [None]
  - CREPITATIONS [None]
  - INJECTION SITE PRURITUS [None]
  - ERYTHEMA [None]
  - INTESTINAL OBSTRUCTION [None]
  - SINUS HEADACHE [None]
  - MUSCULOSKELETAL CHEST PAIN [None]
  - DYSPNOEA [None]
  - FATIGUE [None]
  - VOMITING [None]
  - WHEEZING [None]
  - HYPERTENSION [None]
  - DYSPHONIA [None]
